FAERS Safety Report 4385394-8 (Version None)
Quarter: 2004Q2

REPORT INFORMATION
  Report Type: 
  Country: None (occurrence: None)
  Receive Date: 20040628
  Receipt Date: 20040614
  Transmission Date: 20050107
  Serious: Yes (Death)
  Sender: FDA-Public Use
  Company Number: 200414566US

PATIENT
  Sex: Female

DRUGS (4)
  1. DOCETAXEL [Suspect]
     Indication: LUNG ADENOCARCINOMA STAGE IV
     Route: 042
     Dates: start: 20040402, end: 20040518
  2. IRESSA [Suspect]
     Indication: LUNG ADENOCARCINOMA STAGE IV
     Route: 048
     Dates: start: 20040402, end: 20040518
  3. MORPHINE [Concomitant]
     Route: 042
  4. OXYGEN [Concomitant]
     Dosage: DOSE: 5 LITERS
     Route: 045

REACTIONS (5)
  - DEHYDRATION [None]
  - DIARRHOEA [None]
  - DYSPHAGIA [None]
  - GASTROINTESTINAL TOXICITY [None]
  - ODYNOPHAGIA [None]
